FAERS Safety Report 13314207 (Version 2)
Quarter: 2017Q1

REPORT INFORMATION
  Report Type: Report from Study
  Country: VN (occurrence: VN)
  Receive Date: 20170309
  Receipt Date: 20170329
  Transmission Date: 20170428
  Serious: Yes (Hospitalization, Other)
  Sender: FDA-Public Use
  Company Number: PHHY2015VN024185

PATIENT
  Age: 68 Year
  Sex: Female

DRUGS (3)
  1. GLIVEC [Suspect]
     Active Substance: IMATINIB MESYLATE
     Dosage: 800 MG, QD
     Route: 065
     Dates: start: 20160906, end: 20170214
  2. GLIVEC [Suspect]
     Active Substance: IMATINIB MESYLATE
     Dosage: 600 MG, QD
     Route: 065
     Dates: start: 20160315, end: 20160830
  3. GLIVEC [Suspect]
     Active Substance: IMATINIB MESYLATE
     Indication: DERMATOFIBROSARCOMA PROTUBERANS
     Dosage: 400 MG, QD
     Route: 065
     Dates: start: 20141109, end: 20160301

REACTIONS (7)
  - Bone erosion [Not Recovered/Not Resolved]
  - Pain [Not Recovered/Not Resolved]
  - Malignant neoplasm progression [Not Recovered/Not Resolved]
  - Erythropenia [Not Recovered/Not Resolved]
  - Therapy non-responder [Unknown]
  - Dermatofibrosarcoma protuberans [Not Recovered/Not Resolved]
  - Anaemia [Not Recovered/Not Resolved]

NARRATIVE: CASE EVENT DATE: 201508
